FAERS Safety Report 4863452-9 (Version None)
Quarter: 2005Q4

REPORT INFORMATION
  Report Type: 
  Country: None (occurrence: None)
  Receive Date: 20051222
  Receipt Date: 20050204
  Transmission Date: 20060501
  Serious: No
  Sender: FDA-Public Use
  Company Number: US-GLAXOSMITHKLINE-A0543994A

PATIENT
  Age: 58 Year
  Sex: Female

DRUGS (4)
  1. FLONASE [Suspect]
     Indication: DRUG USE FOR UNKNOWN INDICATION
     Dosage: 2SPR PER DAY
     Route: 045
     Dates: start: 20041101
  2. SYNTHROID [Concomitant]
  3. PREMARIN [Concomitant]
  4. LISINOPRIL [Concomitant]

REACTIONS (3)
  - EAR PAIN [None]
  - PHARYNGOLARYNGEAL PAIN [None]
  - THROAT IRRITATION [None]
